FAERS Safety Report 7570035-9 (Version None)
Quarter: 2011Q2

REPORT INFORMATION
  Report Type: 
  Country: None (occurrence: None)
  Receive Date: 20110620
  Receipt Date: 20110609
  Transmission Date: 20111010
  Serious: Yes (Death, Hospitalization, Other)
  Sender: FDA-Public Use
  Company Number: 2010AC000333

PATIENT
  Age: 43 Year
  Sex: Male
  Weight: 99.7913 kg

DRUGS (11)
  1. ALLOPURINOL [Concomitant]
  2. LIPITOR [Concomitant]
  3. LANTUS [Concomitant]
  4. COUMADIN [Concomitant]
  5. POTASSIUM CHLORIDE [Concomitant]
  6. ZAROXOLYN [Concomitant]
  7. DIGOXIN [Suspect]
     Dosage: 0.25 MG;QD;PO
     Route: 048
     Dates: start: 19980101, end: 20080424
  8. LISINOPRIL [Concomitant]
  9. ADVAIR DISKUS 100/50 [Concomitant]
  10. COLCHICINE [Concomitant]
  11. ASPIRIN [Concomitant]

REACTIONS (26)
  - RECTAL HAEMORRHAGE [None]
  - CONDITION AGGRAVATED [None]
  - VENTRICULAR TACHYCARDIA [None]
  - ANXIETY [None]
  - CARDIAC ARREST [None]
  - IMPLANTABLE DEFIBRILLATOR INSERTION [None]
  - HYPONATRAEMIA [None]
  - PAIN [None]
  - FATIGUE [None]
  - INTERNATIONAL NORMALISED RATIO INCREASED [None]
  - CARDIOACTIVE DRUG LEVEL INCREASED [None]
  - CLOSTRIDIUM DIFFICILE COLITIS [None]
  - COR PULMONALE [None]
  - HEPATIC FAILURE [None]
  - MULTIPLE INJURIES [None]
  - NERVE INJURY [None]
  - COLLAPSE OF LUNG [None]
  - RESPIRATORY FAILURE [None]
  - CARDIAC DISORDER [None]
  - MUSCULOSKELETAL PAIN [None]
  - CARDIAC FAILURE CONGESTIVE [None]
  - ASTHENIA [None]
  - CARDIOGENIC SHOCK [None]
  - ECONOMIC PROBLEM [None]
  - RENAL FAILURE [None]
  - MULTI-ORGAN FAILURE [None]
